FAERS Safety Report 7386816-0 (Version None)
Quarter: 2011Q1

REPORT INFORMATION
  Report Type: 
  Country: None (occurrence: None)
  Receive Date: 20110331
  Receipt Date: 20110325
  Transmission Date: 20110831
  Serious: Yes (Other)
  Sender: FDA-Public Use
  Company Number: FR-PFIZER INC-2011067878

PATIENT
  Age: 58 Year
  Sex: Female

DRUGS (3)
  1. LYRICA [Suspect]
     Dosage: 50 MG, 2X/DAY, IN MORNING AND EVENING
     Dates: start: 20110316
  2. SALAZOPYRINE [Concomitant]
     Dosage: UNK
  3. AMLODIPINE BESYLATE [Concomitant]
     Dosage: UNK

REACTIONS (2)
  - BLISTER [None]
  - MACULE [None]
